FAERS Safety Report 7972519-8 (Version None)
Quarter: 2011Q4

REPORT INFORMATION
  Report Type: 
  Country: None (occurrence: None)
  Receive Date: 20111213
  Receipt Date: 20111130
  Transmission Date: 20120403
  Serious: Yes (Death)
  Sender: FDA-Public Use
  Company Number: US-RANBAXY-2011US-50038

PATIENT
  Age: 7 Year

DRUGS (1)
  1. RISPERIDONE [Suspect]
     Indication: PSYCHOTIC DISORDER
     Dosage: 2 MG/DAY
     Route: 065

REACTIONS (4)
  - ARRHYTHMIA [None]
  - BRAIN OEDEMA [None]
  - ENCEPHALITIS [None]
  - HYPOTENSION [None]
